FAERS Safety Report 24701466 (Version 1)
Quarter: 2024Q4

REPORT INFORMATION
  Report Type: Spontaneous
  Country: US (occurrence: None)
  Receive Date: 20241205
  Receipt Date: 20241205
  Transmission Date: 20250115
  Serious: Yes (Life-Threatening, Disabling, Other)
  Sender: Public
  Company Number: None

PATIENT
  Age: 70 Year
  Sex: Male
  Weight: 71.67 kg

DRUGS (9)
  1. JANUVIA [Suspect]
     Active Substance: SITAGLIPTIN PHOSPHATE
     Indication: Glycosylated haemoglobin increased
     Dosage: FREQUENCY : DAILY;?
     Route: 048
     Dates: start: 20200510, end: 20240605
  2. JANUVIA [Suspect]
     Active Substance: SITAGLIPTIN PHOSPHATE
     Indication: Weight control
  3. TYLENOL [Concomitant]
     Active Substance: ACETAMINOPHEN
  4. DOXYLAMINE SUCCINATE [Concomitant]
     Active Substance: DOXYLAMINE SUCCINATE
     Dosage: FREQUENCY : DAILY;?
  5. CANDIDA BALANCE [Concomitant]
  6. LATEROFLORA [Concomitant]
     Dosage: FREQUENCY : TWICE A DAY;?
  7. TETRACYCLINE HYDROCHLORIDE [Concomitant]
     Active Substance: TETRACYCLINE HYDROCHLORIDE
     Dosage: FREQUENCY : TWICE A DAY;?
  8. LACIDIPINE [Concomitant]
     Active Substance: LACIDIPINE
  9. FLUCONAZOLE [Concomitant]
     Active Substance: FLUCONAZOLE

REACTIONS (7)
  - Perineal infection [None]
  - Furuncle [None]
  - Blood blister [None]
  - Skin fissures [None]
  - Candida infection [None]
  - Pemphigoid [None]
  - Haemorrhage [None]
